FAERS Safety Report 9355128 (Version 1)
Quarter: 2013Q2

REPORT INFORMATION
  Report Type: Report from Study
  Country: ES (occurrence: ES)
  Receive Date: 20130619
  Receipt Date: 20130619
  Transmission Date: 20140414
  Serious: Yes (Other)
  Sender: FDA-Public Use
  Company Number: ES-ELI_LILLY_AND_COMPANY-ES201306003298

PATIENT
  Age: 85 Year
  Sex: Female

DRUGS (3)
  1. TERIPARATIDE [Suspect]
     Indication: FRACTURE
     Dosage: 20 UG, QD
     Route: 058
     Dates: start: 20130531
  2. TERIPARATIDE [Suspect]
     Indication: BONE DEFORMITY
  3. TERIPARATIDE [Suspect]
     Indication: BONE DISORDER

REACTIONS (5)
  - Malaise [Unknown]
  - Tremor [Unknown]
  - Pain [Unknown]
  - Local swelling [Unknown]
  - Off label use [Unknown]
